FAERS Safety Report 20234633 (Version 8)
Quarter: 2024Q2

REPORT INFORMATION
  Report Type: Report from Study
  Country: JP (occurrence: JP)
  Receive Date: 20211227
  Receipt Date: 20240619
  Transmission Date: 20240716
  Serious: Yes (Hospitalization, Other)
  Sender: FDA-Public Use
  Company Number: JP-NOVARTISPH-NVSJ2021JP001110

PATIENT
  Age: 76 Year
  Sex: Female

DRUGS (14)
  1. TABRECTA [Suspect]
     Active Substance: CAPMATINIB
     Indication: Non-small cell lung cancer stage IV
     Dosage: 800 MG
     Route: 048
     Dates: start: 20210108, end: 20210203
  2. TABRECTA [Suspect]
     Active Substance: CAPMATINIB
     Dosage: 600 MG
     Route: 048
     Dates: start: 20210218, end: 20210317
  3. TABRECTA [Suspect]
     Active Substance: CAPMATINIB
     Dosage: 300 MG
     Route: 048
     Dates: start: 20210512, end: 20210609
  4. CORTRIL [Concomitant]
     Active Substance: HYDROCORTISONE
     Indication: Non-small cell lung cancer stage IV
     Dosage: UNK
     Route: 065
  5. CORTRIL [Concomitant]
     Active Substance: HYDROCORTISONE
     Dosage: 20 MG
     Route: 065
  6. SODIUM FERROUS CITRATE [Concomitant]
     Active Substance: SODIUM FERROUS CITRATE
     Indication: Non-small cell lung cancer stage IV
     Dosage: UNK
     Route: 065
  7. ETODOLAC [Concomitant]
     Active Substance: ETODOLAC
     Indication: Non-small cell lung cancer stage IV
     Dosage: UNK
     Route: 065
  8. LYRICA [Concomitant]
     Active Substance: PREGABALIN
     Indication: Non-small cell lung cancer stage IV
     Dosage: UNK
     Route: 048
  9. SULFAMETHOXAZOLE\TRIMETHOPRIM [Concomitant]
     Active Substance: SULFAMETHOXAZOLE\TRIMETHOPRIM
     Indication: Non-small cell lung cancer stage IV
     Dosage: UNK
     Route: 065
  10. FAMOTIDINE [Concomitant]
     Active Substance: FAMOTIDINE
     Indication: Non-small cell lung cancer stage IV
     Dosage: UNK
     Route: 048
  11. ASTOMIN [Concomitant]
     Indication: Non-small cell lung cancer stage IV
     Dosage: UNK
     Route: 065
  12. BROTIZOLAM [Concomitant]
     Active Substance: BROTIZOLAM
     Indication: Non-small cell lung cancer stage IV
     Dosage: UNK
     Route: 065
  13. CODEINE PHOSPHATE [Concomitant]
     Active Substance: CODEINE PHOSPHATE
     Indication: Non-small cell lung cancer stage IV
     Dosage: UNK
     Route: 065
  14. MORPHINE HYDROCHLORIDE [Concomitant]
     Active Substance: MORPHINE HYDROCHLORIDE
     Indication: Non-small cell lung cancer stage IV
     Dosage: UNK
     Route: 065

REACTIONS (13)
  - Non-small cell lung cancer [Recovering/Resolving]
  - Pleural neoplasm [Unknown]
  - Interstitial lung disease [Recovered/Resolved]
  - Oedema peripheral [Recovering/Resolving]
  - Renal impairment [Recovering/Resolving]
  - Blood creatinine increased [Recovered/Resolved]
  - Hypothyroidism [Recovering/Resolving]
  - Concomitant disease aggravated [Recovering/Resolving]
  - Dehydration [Unknown]
  - Nausea [Recovering/Resolving]
  - Pruritus [Recovering/Resolving]
  - Pleural effusion [Unknown]
  - Localised oedema [Unknown]

NARRATIVE: CASE EVENT DATE: 20210112
